FAERS Safety Report 8150160-4 (Version None)
Quarter: 2012Q1

REPORT INFORMATION
  Report Type: 
  Country: None (occurrence: None)
  Receive Date: 20120220
  Receipt Date: 20120210
  Transmission Date: 20120608
  Serious: No
  Sender: FDA-Public Use
  Company Number: US-BIOGENIDEC-2012BI005561

PATIENT
  Sex: Female

DRUGS (2)
  1. AVONEX [Suspect]
     Indication: MULTIPLE SCLEROSIS
     Route: 030
     Dates: start: 20020401, end: 20070607
  2. AVONEX [Suspect]
     Route: 030
     Dates: start: 20110425

REACTIONS (4)
  - BURNING SENSATION [None]
  - COGNITIVE DISORDER [None]
  - PARAESTHESIA [None]
  - HYPOAESTHESIA [None]
